FAERS Safety Report 7933415-5 (Version None)
Quarter: 2011Q4

REPORT INFORMATION
  Report Type: 
  Country: None (occurrence: None)
  Receive Date: 20111122
  Receipt Date: 20111122
  Transmission Date: 20120403
  Serious: Yes (Other)
  Sender: FDA-Public Use
  Company Number: None

PATIENT
  Age: 50 Year
  Sex: Male
  Weight: 86.182 kg

DRUGS (1)
  1. PROPECIA [Suspect]
     Indication: ALOPECIA
     Dosage: 1
     Route: 048
     Dates: start: 20021115, end: 20080701

REACTIONS (2)
  - ERECTILE DYSFUNCTION [None]
  - EJACULATION FAILURE [None]
